FAERS Safety Report 14538558 (Version 1)
Quarter: 2018Q1

REPORT INFORMATION
  Report Type: Spontaneous
  Country: US (occurrence: US)
  Receive Date: 20180216
  Receipt Date: 20180216
  Transmission Date: 20180509
  Serious: No
  Sender: FDA-Public Use
  Company Number: US-ASTRAZENECA-2018SE15399

PATIENT
  Sex: Female

DRUGS (1)
  1. OMEPRAZOLE. [Suspect]
     Active Substance: OMEPRAZOLE
     Indication: RENAL CELL CARCINOMA
     Dosage: ONCE DAILY FOUR WEEKS ON,FOLLOWED BY TWO WEEKS OFF
     Route: 048
     Dates: start: 20171116

REACTIONS (5)
  - Drug ineffective [Unknown]
  - Fatigue [Unknown]
  - Pain in extremity [Unknown]
  - Blister [Unknown]
  - Dyspepsia [Unknown]
